FAERS Safety Report 12812366 (Version 1)
Quarter: 2016Q4

REPORT INFORMATION
  Report Type: Spontaneous
  Country: US (occurrence: US)
  Receive Date: 20161005
  Receipt Date: 20161005
  Transmission Date: 20170207
  Serious: No
  Sender: FDA-Public Use
  Company Number: US-AMGEN-USASP2016125094

PATIENT
  Age: 63 Year
  Sex: Female

DRUGS (23)
  1. METHOTREXATE. [Concomitant]
     Active Substance: METHOTREXATE
  2. CALCIUM [Concomitant]
     Active Substance: CALCIUM
  3. LYSINEL [Concomitant]
  4. PROBIOTIC [Concomitant]
     Active Substance: PROBIOTICS NOS
  5. SYMBICORT [Concomitant]
     Active Substance: BUDESONIDE\FORMOTEROL FUMARATE DIHYDRATE
  6. BIOTIN [Concomitant]
     Active Substance: BIOTIN
  7. OMEGA 3 [Concomitant]
     Active Substance: OMEGA-3 FATTY ACIDS
  8. VITAMIN D [Concomitant]
     Active Substance: CHOLECALCIFEROL
  9. VITAMIN E [Concomitant]
     Active Substance: .ALPHA.-TOCOPHEROL
  10. ZINC [Concomitant]
     Active Substance: ZINC\ZINC CHLORIDE
  11. FOLIC ACID. [Concomitant]
     Active Substance: FOLIC ACID
  12. MAGNESIUM [Concomitant]
     Active Substance: MAGNESIUM
  13. VITAMIN C [Concomitant]
     Active Substance: ASCORBIC ACID
  14. ENBREL [Suspect]
     Active Substance: ETANERCEPT
     Indication: PSORIATIC ARTHROPATHY
  15. RED YEAST RICE [Concomitant]
     Active Substance: DIETARY SUPPLEMENT
  16. WELLBUTRIN [Concomitant]
     Active Substance: BUPROPION HYDROCHLORIDE
  17. ENBREL [Suspect]
     Active Substance: ETANERCEPT
     Indication: PSORIASIS
     Dosage: 50 MG, 2 TIMES/WK
     Route: 058
     Dates: start: 201510, end: 201609
  18. ADVIL [Concomitant]
     Active Substance: IBUPROFEN
  19. CINNAMON. [Concomitant]
     Active Substance: CINNAMON
  20. CLOBETASOL [Concomitant]
     Active Substance: CLOBETASOL
  21. CYMBALTA [Concomitant]
     Active Substance: DULOXETINE HYDROCHLORIDE
  22. FISH OIL [Concomitant]
     Active Substance: FISH OIL
  23. NICOTINE. [Concomitant]
     Active Substance: NICOTINE

REACTIONS (1)
  - Drug ineffective [Not Recovered/Not Resolved]
